FAERS Safety Report 16847781 (Version 1)
Quarter: 2019Q3

REPORT INFORMATION
  Report Type: Spontaneous
  Country: US (occurrence: US)
  Receive Date: 20190924
  Receipt Date: 20190924
  Transmission Date: 20191005
  Serious: No
  Sender: FDA-Public Use
  Company Number: US-ACORDA-ACO_159934_2019

PATIENT
  Sex: Female
  Weight: 56.69 kg

DRUGS (1)
  1. INBRIJA [Suspect]
     Active Substance: LEVODOPA
     Indication: PARKINSON^S DISEASE
     Dosage: UNK, PRN
     Dates: start: 20190705

REACTIONS (5)
  - Drug ineffective [Unknown]
  - Tremor [Unknown]
  - Emotional distress [Unknown]
  - Incorrect dose administered [Unknown]
  - Therapeutic product effect delayed [Unknown]
